FAERS Safety Report 5130717-5 (Version None)
Quarter: 2006Q4

REPORT INFORMATION
  Report Type: 
  Country: None (occurrence: None)
  Receive Date: 20061018
  Receipt Date: 20061018
  Transmission Date: 20070319
  Serious: Yes (Hospitalization)
  Sender: FDA-Public Use
  Company Number: None

PATIENT
  Age: 78 Year
  Sex: Female
  Weight: 72.2 kg

DRUGS (8)
  1. WARFARIN SODIUM [Suspect]
     Indication: ATRIAL FIBRILLATION
  2. PLAVIX [Suspect]
     Indication: STENT PLACEMENT
  3. ASPIRIN [Suspect]
  4. CALCIUM GLUCONATE [Concomitant]
  5. IRON [Concomitant]
  6. COREG [Concomitant]
  7. DIOVAN [Concomitant]
  8. OCCASIONAL NSAIDS [Concomitant]

REACTIONS (5)
  - CHEST PAIN [None]
  - DIZZINESS [None]
  - DYSPNOEA [None]
  - EPISTAXIS [None]
  - MELAENA [None]
